FAERS Safety Report 4369594-9 (Version None)
Quarter: 2004Q2

REPORT INFORMATION
  Report Type: 
  Country: None (occurrence: None)
  Receive Date: 20040526
  Receipt Date: 20040213
  Transmission Date: 20050107
  Serious: Yes (Hospitalization)
  Sender: FDA-Public Use
  Company Number: USA040259314

PATIENT
  Age: 94 Year
  Sex: Female

DRUGS (12)
  1. ZYPREXA [Suspect]
     Indication: DEMENTIA
     Dosage: 5 MG/DAY
     Dates: start: 20040116
  2. DEPAKOTE [Concomitant]
  3. XANAX [Concomitant]
  4. APO-METOPROLOL (METOPROLOL TARTRATE) [Concomitant]
  5. ZANTAC [Concomitant]
  6. POTASSIUM [Concomitant]
  7. NORVASC (AMLODIIPINE BESILATE) [Concomitant]
  8. MVI (MVI) [Concomitant]
  9. PENTA-TRIAMTERENE HCTZ [Concomitant]
  10. PERI-COLACE [Concomitant]
  11. NITROQUICK (GLYCERYL TRINITRATE) [Concomitant]
  12. AMBIEN [Concomitant]

REACTIONS (7)
  - CHEST PAIN [None]
  - FEAR [None]
  - HALLUCINATION, VISUAL [None]
  - MENTAL STATUS CHANGES [None]
  - PANIC ATTACK [None]
  - PARANOIA [None]
  - URINARY TRACT INFECTION [None]
